FAERS Safety Report 10619063 (Version 1)
Quarter: 2014Q4

REPORT INFORMATION
  Report Type: Spontaneous
  Country: DE (occurrence: DE)
  Receive Date: 20141202
  Receipt Date: 20141202
  Transmission Date: 20150529
  Serious: Yes (Other)
  Sender: FDA-Public Use
  Company Number: DE-ASTRAZENECA-2014SE90777

PATIENT
  Age: 11 Week
  Sex: Male
  Weight: 3.5 kg

DRUGS (1)
  1. QUETIAPINE [Suspect]
     Active Substance: QUETIAPINE
     Indication: DEPRESSION
     Route: 063

REACTIONS (2)
  - Respiratory arrest [Recovered/Resolved]
  - Exposure during breast feeding [Unknown]
